FAERS Safety Report 10078441 (Version 53)
Quarter: 2016Q2

REPORT INFORMATION
  Report Type: Report from Study
  Country: CA (occurrence: CA)
  Receive Date: 20140415
  Receipt Date: 20160609
  Transmission Date: 20160815
  Serious: Yes (Other)
  Sender: FDA-Public Use
  Company Number: CA-ROCHE-1312090

PATIENT
  Age: 68 Year
  Sex: Female

DRUGS (11)
  1. HERCEPTIN [Suspect]
     Active Substance: TRASTUZUMAB
     Indication: BREAST CANCER METASTATIC
     Route: 042
     Dates: start: 201308, end: 2013
  2. PERJETA [Suspect]
     Active Substance: PERTUZUMAB
     Dosage: DO NOT PROCEED WITH PERJETA INFUSION ON 29/OCT/2014. ?PATIENT FILE TO BE PLACED ON HOLD UNTIL - ONLY
     Route: 042
     Dates: start: 20130924
  3. TYLENOL [Suspect]
     Active Substance: ACETAMINOPHEN
     Indication: TOOTHACHE
     Route: 048
  4. TIAZAC (CANADA) [Concomitant]
  5. PERJETA [Suspect]
     Active Substance: PERTUZUMAB
     Indication: HER-2 POSITIVE BREAST CANCER
     Route: 042
     Dates: start: 20130904, end: 20130904
  6. TAXOTERE [Suspect]
     Active Substance: DOCETAXEL
     Indication: BREAST CANCER
     Dosage: UNKNOWN DOSE
     Route: 042
     Dates: start: 200310, end: 200401
  7. TECTA [Concomitant]
     Active Substance: PANTOPRAZOLE MAGNESIUM
  8. RAMIPRIL. [Concomitant]
     Active Substance: RAMIPRIL
     Route: 065
  9. IMOVANE [Concomitant]
     Active Substance: ZOPICLONE
  10. PERJETA [Suspect]
     Active Substance: PERTUZUMAB
     Route: 042
     Dates: start: 20141119
  11. HERCEPTIN [Suspect]
     Active Substance: TRASTUZUMAB
     Route: 042
     Dates: start: 200405

REACTIONS (53)
  - Tooth infection [Recovered/Resolved]
  - Abdominal discomfort [Not Recovered/Not Resolved]
  - Mean platelet volume decreased [Unknown]
  - Implant site extravasation [Not Recovered/Not Resolved]
  - Dyspepsia [Unknown]
  - Depression [Not Recovered/Not Resolved]
  - Oxygen saturation decreased [Unknown]
  - Haemorrhoids [Unknown]
  - Infusion related reaction [Unknown]
  - Rash [Not Recovered/Not Resolved]
  - Rib fracture [Not Recovered/Not Resolved]
  - Muscle spasms [Recovered/Resolved]
  - Muscle spasms [Not Recovered/Not Resolved]
  - Muscular weakness [Not Recovered/Not Resolved]
  - Peripheral coldness [Unknown]
  - Mastectomy [Unknown]
  - Lacrimation increased [Not Recovered/Not Resolved]
  - Vomiting [Unknown]
  - Body temperature fluctuation [Unknown]
  - Blood pressure increased [Unknown]
  - Gastrooesophageal reflux disease [Not Recovered/Not Resolved]
  - Pruritus [Not Recovered/Not Resolved]
  - Stomatitis [Not Recovered/Not Resolved]
  - Laryngitis [Recovering/Resolving]
  - Palpitations [Unknown]
  - Migraine with aura [Recovered/Resolved]
  - Blood creatinine decreased [Unknown]
  - Blood pressure diastolic decreased [Unknown]
  - Cough [Unknown]
  - Diarrhoea [Not Recovered/Not Resolved]
  - Dyspnoea exertional [Not Recovered/Not Resolved]
  - Breast pain [Not Recovered/Not Resolved]
  - Fatigue [Not Recovered/Not Resolved]
  - Nausea [Not Recovered/Not Resolved]
  - Bladder prolapse [Recovered/Resolved]
  - Depression [Unknown]
  - Muscular weakness [Unknown]
  - Dyspnoea [Unknown]
  - Rib fracture [Not Recovered/Not Resolved]
  - Migraine [Unknown]
  - Tooth extraction [Unknown]
  - Dysgeusia [Unknown]
  - Hypoaesthesia [Not Recovered/Not Resolved]
  - Nasopharyngitis [Recovering/Resolving]
  - Emotional disorder [Not Recovered/Not Resolved]
  - Uterine prolapse [Recovered/Resolved]
  - Influenza [Unknown]
  - Diarrhoea [Not Recovered/Not Resolved]
  - Hypotension [Unknown]
  - Toothache [Unknown]
  - Muscle fatigue [Not Recovered/Not Resolved]
  - Constipation [Unknown]
  - Poor peripheral circulation [Unknown]

NARRATIVE: CASE EVENT DATE: 2013
